FAERS Safety Report 24629073 (Version 2)
Quarter: 2024Q4

REPORT INFORMATION
  Report Type: Spontaneous
  Country: JP (occurrence: JP)
  Receive Date: 20241118
  Receipt Date: 20241217
  Transmission Date: 20250115
  Serious: Yes (Hospitalization)
  Sender: GLAXOSMITHKLINE
  Company Number: JP-GSKJP-JP2024JPN141223AA

PATIENT

DRUGS (1)
  1. DAPRODUSTAT [Suspect]
     Active Substance: DAPRODUSTAT
     Indication: Nephrogenic anaemia
     Dosage: 4 MG

REACTIONS (6)
  - Transfusion [Recovered/Resolved]
  - Dental operation [Unknown]
  - Haemorrhage [Unknown]
  - Dizziness [Recovered/Resolved]
  - Haemoglobin decreased [Recovered/Resolved]
  - Physical deconditioning [Recovered/Resolved]

NARRATIVE: CASE EVENT DATE: 20241112
